FAERS Safety Report 7557218-9 (Version None)
Quarter: 2011Q2

REPORT INFORMATION
  Report Type: 
  Country: None (occurrence: None)
  Receive Date: 20110620
  Receipt Date: 20110207
  Transmission Date: 20111010
  Serious: No
  Sender: FDA-Public Use
  Company Number: US-MYLANLABS-2011S1000384

PATIENT
  Age: 63 Year
  Sex: Female
  Weight: 54.43 kg

DRUGS (4)
  1. XANAX [Concomitant]
  2. METHADONE HCL [Concomitant]
  3. PERFOROMIST [Suspect]
     Indication: EMPHYSEMA
     Route: 055
     Dates: start: 20110103, end: 20110103
  4. VOLTAREN [Concomitant]

REACTIONS (8)
  - INSOMNIA [None]
  - EYE SWELLING [None]
  - DIZZINESS [None]
  - ABNORMAL SENSATION IN EYE [None]
  - FEELING ABNORMAL [None]
  - NERVOUSNESS [None]
  - FATIGUE [None]
  - HEADACHE [None]
